FAERS Safety Report 12946263 (Version 2)
Quarter: 2016Q4

REPORT INFORMATION
  Report Type: Spontaneous
  Country: US (occurrence: US)
  Receive Date: 20161115
  Receipt Date: 20161219
  Transmission Date: 20170207
  Serious: No
  Sender: FDA-Public Use
  Company Number: US-TAIHO ONCOLOGY INC-EU-2016-02932

PATIENT
  Age: 65 Year
  Sex: Male

DRUGS (10)
  1. XANAX [Concomitant]
     Active Substance: ALPRAZOLAM
     Dosage: NI
  2. MORPHINE SULFATE. [Concomitant]
     Active Substance: MORPHINE SULFATE
     Dosage: NI
  3. VENLAFAXINE [Concomitant]
     Active Substance: VENLAFAXINE HYDROCHLORIDE
     Dosage: NI
  4. OXYCODONE [Concomitant]
     Active Substance: OXYCODONE
     Dosage: NI
  5. METOPROLOL. [Concomitant]
     Active Substance: METOPROLOL
     Dosage: NI
  6. LONSURF [Suspect]
     Active Substance: TIPIRACIL HYDROCHLORIDE\TRIFLURIDINE
     Indication: COLORECTAL CANCER
     Route: 048
     Dates: start: 201609
  7. METHADONE [Concomitant]
     Active Substance: METHADONE HYDROCHLORIDE
  8. AMLODIPINE [Concomitant]
     Active Substance: AMLODIPINE BESYLATE
     Indication: HYPERTENSION
     Dosage: NI
  9. TOPROL XL [Concomitant]
     Active Substance: METOPROLOL SUCCINATE
     Indication: HYPERTENSION
     Dosage: NI
  10. NEURONTIN [Concomitant]
     Active Substance: GABAPENTIN

REACTIONS (5)
  - Cancer pain [Unknown]
  - Decubitus ulcer [Not Recovered/Not Resolved]
  - Sciatica [Unknown]
  - Vomiting [Recovered/Resolved]
  - Back pain [Unknown]

NARRATIVE: CASE EVENT DATE: 2016
